FAERS Safety Report 15916497 (Version 1)
Quarter: 2019Q1

REPORT INFORMATION
  Report Type: Report from Study
  Country: US (occurrence: US)
  Receive Date: 20190204
  Receipt Date: 20190204
  Transmission Date: 20190417
  Serious: Yes (Hospitalization, Other)
  Sender: FDA-Public Use
  Company Number: US-MYLANLABS-2018M1097014

PATIENT

DRUGS (22)
  1. TOBI PODHALER [Suspect]
     Active Substance: TOBRAMYCIN
     Dosage: 112 OT, BID
     Route: 055
     Dates: start: 20170202, end: 20170301
  2. TOBI PODHALER [Suspect]
     Active Substance: TOBRAMYCIN
     Dosage: 112 OT, BID
     Route: 055
     Dates: start: 20170330, end: 20170413
  3. LEVALBUTEROL                       /01419301/ [Concomitant]
     Active Substance: LEVALBUTEROL
     Indication: CYSTIC FIBROSIS
     Dosage: 0.63 MG, QID
     Route: 055
     Dates: start: 20170609
  4. DOCUSATE [Concomitant]
     Active Substance: DOCUSATE
     Indication: CONSTIPATION
     Dosage: UNK
     Route: 065
     Dates: start: 20150101
  5. PULMOZYME [Concomitant]
     Active Substance: DORNASE ALFA
     Indication: CYSTIC FIBROSIS
     Dosage: 2.5 MG, QD
     Route: 055
     Dates: start: 20030101
  6. SENNA                              /00142201/ [Concomitant]
     Active Substance: SENNA LEAF
     Indication: CONSTIPATION
     Dosage: UNK
     Route: 065
     Dates: start: 20150101
  7. HYPERSAL [Concomitant]
     Indication: CYSTIC FIBROSIS
     Dosage: UNK
     Route: 065
     Dates: start: 19930101
  8. LANSOPRAZOLE. [Concomitant]
     Active Substance: LANSOPRAZOLE
     Indication: GASTROOESOPHAGEAL REFLUX DISEASE
     Dosage: UNK
     Route: 065
     Dates: start: 20150101
  9. PULMOZYME [Concomitant]
     Active Substance: DORNASE ALFA
     Dosage: 2.5 MG, QD
     Route: 055
     Dates: start: 20170609
  10. TOBI PODHALER [Suspect]
     Active Substance: TOBRAMYCIN
     Dosage: 112 OT, BID
     Route: 055
     Dates: start: 20170526, end: 20170622
  11. AMITIZA [Concomitant]
     Active Substance: LUBIPROSTONE
     Indication: CONSTIPATION
     Dosage: UNK
     Route: 065
     Dates: start: 20150101
  12. TOBI [Concomitant]
     Active Substance: TOBRAMYCIN
     Indication: PSEUDOMONAS INFECTION
     Dosage: UNK
     Route: 065
     Dates: start: 20120101
  13. FLONASE                            /00908302/ [Concomitant]
     Active Substance: MOMETASONE FUROATE
     Indication: SINUSITIS
     Dosage: UNK
     Route: 065
     Dates: start: 20150101
  14. ZENPEP [Concomitant]
     Active Substance: PANCRELIPASE AMYLASE\PANCRELIPASE LIPASE\PANCRELIPASE PROTEASE
     Dosage: 2000 U, TID
     Route: 048
     Dates: start: 20170610, end: 20170613
  15. TOBI PODHALER [Suspect]
     Active Substance: TOBRAMYCIN
     Indication: CHRONIC RESPIRATORY DISEASE
     Dosage: UNK
     Route: 065
  16. TOBI PODHALER [Suspect]
     Active Substance: TOBRAMYCIN
     Indication: CHRONIC RESPIRATORY DISEASE
     Dosage: 120 OT, BID
     Route: 055
     Dates: start: 20170107, end: 20170110
  17. MONTELUKAST [Concomitant]
     Active Substance: MONTELUKAST SODIUM
     Indication: SINUSITIS
     Dosage: UNK
     Route: 065
     Dates: start: 20150101
  18. ADVAIR HFA [Concomitant]
     Active Substance: FLUTICASONE PROPIONATE\SALMETEROL XINAFOATE
     Indication: CYSTIC FIBROSIS
     Dosage: 230 MG, BID
     Route: 055
     Dates: start: 20150101
  19. ADVAIR HFA [Concomitant]
     Active Substance: FLUTICASONE PROPIONATE\SALMETEROL XINAFOATE
     Dosage: 230 MG, BID
     Route: 055
     Dates: start: 20170609
  20. LEVALBUTEROL                       /01419301/ [Concomitant]
     Active Substance: LEVALBUTEROL
     Indication: BRONCHIECTASIS
     Dosage: 0.63 MG, QID
     Route: 055
     Dates: start: 20150101
  21. CHOLECALCIFEROL [Concomitant]
     Active Substance: CHOLECALCIFEROL
     Indication: SUPPLEMENTATION THERAPY
     Dosage: UNK
     Route: 065
     Dates: start: 20150101
  22. ZENPEP [Concomitant]
     Active Substance: PANCRELIPASE AMYLASE\PANCRELIPASE LIPASE\PANCRELIPASE PROTEASE
     Indication: PRODUCT USED FOR UNKNOWN INDICATION
     Dosage: UNK
     Route: 065
     Dates: start: 20150101

REACTIONS (10)
  - Pain [Recovering/Resolving]
  - Abdominal pain [Recovered/Resolved]
  - Infective pulmonary exacerbation of cystic fibrosis [Recovered/Resolved]
  - Pancreatitis acute [Recovered/Resolved]
  - Epistaxis [Unknown]
  - Hemiparesis [Recovering/Resolving]
  - Syringomyelia [Recovered/Resolved]
  - Pulmonary mass [Unknown]
  - Bronchial wall thickening [Unknown]
  - Blood glucose increased [Unknown]

NARRATIVE: CASE EVENT DATE: 20170104
